FAERS Safety Report 21589347 (Version 2)
Quarter: 2022Q4

REPORT INFORMATION
  Report Type: Report from Study
  Country: US (occurrence: US)
  Receive Date: 20221114
  Receipt Date: 20221216
  Transmission Date: 20230113
  Serious: Yes (Hospitalization, Other)
  Sender: FDA-Public Use
  Company Number: US-BoehringerIngelheim-2021-BI-135751

PATIENT
  Age: 71 Year
  Sex: Male

DRUGS (1)
  1. OFEV [Suspect]
     Active Substance: NINTEDANIB
     Indication: Idiopathic pulmonary fibrosis
     Dosage: TAKE WITH FOOD
     Route: 048

REACTIONS (31)
  - Ankle operation [Unknown]
  - Constipation [Not Recovered/Not Resolved]
  - Bone graft [Not Recovered/Not Resolved]
  - Haemoptysis [Recovered/Resolved]
  - Pneumonia [Not Recovered/Not Resolved]
  - Renal disorder [Not Recovered/Not Resolved]
  - Weight decreased [Recovered/Resolved]
  - Cardiac failure congestive [Unknown]
  - Fluid retention [Recovered/Resolved]
  - Diarrhoea [Recovered/Resolved]
  - Depression [Unknown]
  - Impaired healing [Unknown]
  - Upper-airway cough syndrome [Unknown]
  - Faeces soft [Unknown]
  - Blood pressure increased [Unknown]
  - Urinary retention [Unknown]
  - Arthralgia [Not Recovered/Not Resolved]
  - Alopecia [Not Recovered/Not Resolved]
  - Dehydration [Unknown]
  - Traumatic fracture [Unknown]
  - Pain in extremity [Unknown]
  - Cough [Unknown]
  - Sinus congestion [Unknown]
  - Paranasal sinus hypersecretion [Unknown]
  - Dyspnoea exertional [Unknown]
  - Dizziness [Unknown]
  - Headache [Unknown]
  - Depressed mood [Unknown]
  - Insomnia [Unknown]
  - Diarrhoea [Unknown]
  - Faeces discoloured [Unknown]

NARRATIVE: CASE EVENT DATE: 20211027
